FAERS Safety Report 6963056-8 (Version None)
Quarter: 2010Q3

REPORT INFORMATION
  Report Type: 
  Country: None (occurrence: None)
  Receive Date: 20100830
  Receipt Date: 20100817
  Transmission Date: 20110219
  Serious: Yes (Disabling)
  Sender: FDA-Public Use
  Company Number: B0631240A

PATIENT
  Sex: Female

DRUGS (6)
  1. RELENZA [Suspect]
     Indication: H1N1 INFLUENZA
     Dosage: 260 MG / TWICE PER DAY / INTRAVENOUS
     Route: 042
     Dates: start: 20091219, end: 20091224
  2. VORICONAZOLE [Suspect]
     Dosage: 90 MG / TWICE PER DAY / INTRAVENOUS
     Route: 042
     Dates: start: 20091218, end: 20091225
  3. CYCLOSPORINE [Suspect]
     Indication: SECONDARY IMMUNODEFICIENCY
     Dosage: 15 MG / TWICE PER DAY / INTRAVENOUS
     Route: 042
     Dates: start: 20091203, end: 20091222
  4. MEROPENEM [Concomitant]
  5. OSELTAMIVIR PHOSPHATE [Concomitant]
  6. PREDNISONE [Concomitant]

REACTIONS (9)
  - ACUTE RESPIRATORY DISTRESS SYNDROME [None]
  - ALANINE AMINOTRANSFERASE INCREASED [None]
  - ASPARTATE AMINOTRANSFERASE INCREASED [None]
  - CHOLESTASIS [None]
  - IMPAIRED GASTRIC EMPTYING [None]
  - LEUKOPENIA [None]
  - PORTAL VEIN THROMBOSIS [None]
  - PYREXIA [None]
  - RENAL INJURY [None]
